FAERS Safety Report 25833061 (Version 3)
Quarter: 2025Q3

REPORT INFORMATION
  Report Type: Spontaneous
  Country: US (occurrence: US)
  Receive Date: 20250922
  Receipt Date: 20250926
  Transmission Date: 20251020
  Serious: Yes (Other)
  Sender: PFIZER
  Company Number: US-PFIZER INC-202500184692

PATIENT
  Sex: Male

DRUGS (3)
  1. LORBRENA [Suspect]
     Active Substance: LORLATINIB
     Indication: Small cell lung cancer
     Dosage: 100 MG ONCE A DAY
  2. LORBRENA [Suspect]
     Active Substance: LORLATINIB
     Indication: Neoplasm malignant
  3. ELIQUIS [Suspect]
     Active Substance: APIXABAN

REACTIONS (4)
  - Psychotic disorder [Unknown]
  - Mania [Not Recovered/Not Resolved]
  - Loss of personal independence in daily activities [Unknown]
  - Off label use [Unknown]
